FAERS Safety Report 8244105-6 (Version None)
Quarter: 2012Q1

REPORT INFORMATION
  Report Type: 
  Country: None (occurrence: None)
  Receive Date: 20120329
  Receipt Date: 20120320
  Transmission Date: 20120608
  Serious: Yes (Other)
  Sender: FDA-Public Use
  Company Number: US-ABBOTT-12P-163-0916726-00

PATIENT
  Sex: Female
  Weight: 75.364 kg

DRUGS (2)
  1. HUMIRA [Suspect]
     Indication: RHEUMATOID ARTHRITIS
  2. PREDNISONE TAB [Concomitant]
     Indication: RHEUMATOID ARTHRITIS

REACTIONS (8)
  - JOINT EFFUSION [None]
  - INJECTION SITE PAIN [None]
  - WALKING AID USER [None]
  - INJECTION SITE SWELLING [None]
  - INJECTION SITE RASH [None]
  - POLYARTHRITIS [None]
  - INJECTION SITE PRURITUS [None]
  - ARTHRITIS [None]
